FAERS Safety Report 24537651 (Version 3)
Quarter: 2024Q4

REPORT INFORMATION
  Report Type: Spontaneous
  Country: FR (occurrence: FR)
  Receive Date: 20241023
  Receipt Date: 20241129
  Transmission Date: 20250114
  Serious: Yes (Congenital Anomaly, Other)
  Sender: UCB
  Company Number: FR-UCBSA-2024053604

PATIENT
  Age: 0 Year
  Sex: Female

DRUGS (1)
  1. CIMZIA [Suspect]
     Active Substance: CERTOLIZUMAB PEGOL
     Indication: Rheumatoid arthritis
     Dosage: 200 MILLIGRAM, EV 4 WEEKS
     Route: 064
     Dates: start: 20240103

REACTIONS (4)
  - Fallot^s tetralogy [Not Recovered/Not Resolved]
  - Oesophageal atresia [Unknown]
  - Anal atresia [Unknown]
  - Maternal exposure during pregnancy [Unknown]

NARRATIVE: CASE EVENT DATE: 20240103
